FAERS Safety Report 26018817 (Version 1)
Quarter: 2025Q4

REPORT INFORMATION
  Report Type: Spontaneous
  Country: US (occurrence: US)
  Receive Date: 20251110
  Receipt Date: 20251110
  Transmission Date: 20260118
  Serious: Yes (Hospitalization, Other)
  Sender: COOPERSURGICAL
  Company Number: US-COOPERSURGICAL, INC.-2025CPS007717

PATIENT
  Sex: Female
  Weight: 58.957 kg

DRUGS (1)
  1. PARAGARD T 380A [Suspect]
     Active Substance: COPPER
     Indication: Contraception
     Dosage: UNK
     Route: 015
     Dates: start: 20130819, end: 20200721

REACTIONS (48)
  - Hysterectomy [Recovered/Resolved]
  - Salpingectomy [Recovered/Resolved]
  - Reproductive complication associated with device [Not Recovered/Not Resolved]
  - Device breakage [Recovered/Resolved]
  - Foreign body in reproductive tract [Recovered/Resolved]
  - Complication of device removal [Recovered/Resolved]
  - Embedded device [Recovered/Resolved]
  - Device issue [Recovered/Resolved]
  - Emotional distress [Not Recovered/Not Resolved]
  - Pelvic floor dysfunction [Not Recovered/Not Resolved]
  - Uterine scar [Unknown]
  - Dysuria [Unknown]
  - Post procedural hypotension [Recovered/Resolved]
  - Bradycardia [Recovered/Resolved]
  - Pollakiuria [Unknown]
  - Micturition urgency [Unknown]
  - Urinary tract infection [Unknown]
  - Procedural pain [Recovered/Resolved]
  - Post procedural haemorrhage [Recovered/Resolved]
  - Procedural nausea [Recovered/Resolved]
  - Pyrexia [Unknown]
  - Vulvovaginal burning sensation [Unknown]
  - Vulvovaginal pruritus [Unknown]
  - Vulvovaginal discomfort [Unknown]
  - Vulvovaginal pain [Unknown]
  - Genital erythema [Unknown]
  - Chills [Unknown]
  - Flank pain [Unknown]
  - Medical device site inflammation [Unknown]
  - Hypoaesthesia [Recovered/Resolved]
  - Limb discomfort [Recovered/Resolved]
  - Genito-pelvic pain/penetration disorder [Unknown]
  - Abdominal pain [Not Recovered/Not Resolved]
  - Vaginal infection [Recovered/Resolved]
  - Dyspareunia [Recovered/Resolved]
  - Pelvic pain [Not Recovered/Not Resolved]
  - Back pain [Not Recovered/Not Resolved]
  - Abnormal uterine bleeding [Unknown]
  - Dysmenorrhoea [Unknown]
  - Heavy menstrual bleeding [Unknown]
  - Vaginal haemorrhage [Unknown]
  - Suprapubic pain [Unknown]
  - Back pain [Unknown]
  - Vaginal discharge [Unknown]
  - Vulvovaginal mycotic infection [Unknown]
  - Vulvovaginal candidiasis [Unknown]
  - Muscle spasms [Unknown]
  - Pain [Unknown]

NARRATIVE: CASE EVENT DATE: 20130101
